FAERS Safety Report 25818111 (Version 3)
Quarter: 2025Q4

REPORT INFORMATION
  Report Type: Spontaneous
  Country: EU (occurrence: EU)
  Receive Date: 20250918
  Receipt Date: 20251126
  Transmission Date: 20260118
  Serious: Yes (Life-Threatening, Hospitalization, Other)
  Sender: MERCK SHARP & DOHME LLC
  Company Number: EU-009507513-2329054

PATIENT
  Age: 57 Year
  Sex: Male

DRUGS (4)
  1. DELSTRIGO [Suspect]
     Active Substance: DORAVIRINE\LAMIVUDINE\TENOFOVIR DISOPROXIL FUMARATE
     Indication: HIV infection
     Route: 048
     Dates: start: 20210430, end: 20250526
  2. CANDESARTAN [Concomitant]
     Active Substance: CANDESARTAN
  3. BISOPROLOL [Concomitant]
     Active Substance: BISOPROLOL
  4. ASPIRIN [Concomitant]
     Active Substance: ASPIRIN

REACTIONS (9)
  - Encephalitis viral [Recovered/Resolved]
  - Glioblastoma [Unknown]
  - Pneumonia aspiration [Recovered/Resolved]
  - Brain neoplasm [Recovered/Resolved]
  - Dysarthria [Recovered/Resolved]
  - Intracranial mass [Recovered/Resolved]
  - CSF HIV virus identified [Recovered/Resolved]
  - Seizure [Unknown]
  - Cerebral haemorrhage [Unknown]

NARRATIVE: CASE EVENT DATE: 20250101
